FAERS Safety Report 12652988 (Version 1)
Quarter: 2016Q3

REPORT INFORMATION
  Report Type: Spontaneous
  Country: US (occurrence: US)
  Receive Date: 20160815
  Receipt Date: 20160815
  Transmission Date: 20161109
  Serious: Yes (Other)
  Sender: FDA-Public Use
  Company Number: US-BAUSCH-BL-2016-019230

PATIENT
  Sex: Female

DRUGS (1)
  1. XENAZINE [Suspect]
     Active Substance: TETRABENAZINE
     Indication: CHOREA
     Route: 048

REACTIONS (5)
  - Depression [Unknown]
  - Fall [Unknown]
  - Upper limb fracture [Unknown]
  - Arthritis [Unknown]
  - Joint injury [Unknown]

NARRATIVE: CASE EVENT DATE: 2014
